FAERS Safety Report 10527440 (Version 1)
Quarter: 2014Q4

REPORT INFORMATION
  Report Type: Spontaneous
  Country: US (occurrence: None)
  Receive Date: 20141016
  Receipt Date: 20141016
  Transmission Date: 20150528
  Serious: Yes (Other)
  Sender: FDA-Public Use
  Company Number: None

PATIENT
  Age: 23 Year
  Sex: Male
  Weight: 79.38 kg

DRUGS (1)
  1. ADDERALL [Suspect]
     Active Substance: AMPHETAMINE ASPARTATE\AMPHETAMINE SULFATE\DEXTROAMPHETAMINE SACCHARATE\DEXTROAMPHETAMINE SULFATE
     Indication: ATTENTION DEFICIT/HYPERACTIVITY DISORDER
     Dosage: 1 PILL
     Route: 048
     Dates: start: 20141009, end: 20141015

REACTIONS (10)
  - Disturbance in attention [None]
  - Attention deficit/hyperactivity disorder [None]
  - Myalgia [None]
  - Fatigue [None]
  - Product quality issue [None]
  - Product substitution issue [None]
  - Nausea [None]
  - Major depression [None]
  - Drug ineffective [None]
  - Asthenia [None]
